FAERS Safety Report 6568066-0 (Version None)
Quarter: 2010Q1

REPORT INFORMATION
  Report Type: 
  Country: None (occurrence: None)
  Receive Date: 20100129
  Receipt Date: 20100113
  Transmission Date: 20100710
  Serious: Yes (Death, Hospitalization)
  Sender: FDA-Public Use
  Company Number: 2009AC000435

PATIENT
  Age: 60 Year
  Sex: Female

DRUGS (38)
  1. DIGOXIN [Suspect]
     Indication: CARDIAC DISORDER
     Dosage: 0.125 MG;QD;PO
     Route: 048
     Dates: start: 20070701
  2. FLUOXETINE [Concomitant]
  3. LEVAQUIN [Concomitant]
  4. PROTONIX [Concomitant]
  5. SYNTHROID [Concomitant]
  6. TOPROL-XL [Concomitant]
  7. PLAVIX [Concomitant]
  8. ASPIRIN [Concomitant]
  9. PLAVIX [Concomitant]
  10. FLUOXETINE [Concomitant]
  11. PROTONIX [Concomitant]
  12. COZAAR [Concomitant]
  13. SYNTHROID [Concomitant]
  14. LASIX [Concomitant]
  15. POTASSIUM CHLORIDE [Concomitant]
  16. IRON [Concomitant]
  17. ZETIA [Concomitant]
  18. TRICOR [Concomitant]
  19. ALDACTONE [Concomitant]
  20. CLARINEX [Concomitant]
  21. PACERONE [Concomitant]
  22. PROMETHAZINE [Concomitant]
  23. PHENAZOPYRIDINE [Concomitant]
  24. CIPROFLOXICILLIN [Concomitant]
  25. NAPROXEN [Concomitant]
  26. OXYCODONE HCL [Concomitant]
  27. HEPARIN [Concomitant]
  28. SODIUM CHLORIDE [Concomitant]
  29. VANCOMYCIN [Concomitant]
  30. CLEOCIN [Concomitant]
  31. PROZAC [Concomitant]
  32. MYCOSTATIN [Concomitant]
  33. ZITHROMAX [Concomitant]
  34. COMBIVENT [Concomitant]
  35. CRESTOR [Concomitant]
  36. VERSED [Concomitant]
  37. FENTANYL-100 [Concomitant]
  38. PHENAZOPYRIDINE HCL TAB [Concomitant]

REACTIONS (21)
  - ABDOMINAL PAIN [None]
  - ACUTE MYOCARDIAL INFARCTION [None]
  - ATRIAL FIBRILLATION [None]
  - BRADYCARDIA [None]
  - CARDIAC FAILURE CONGESTIVE [None]
  - CARDIOMEGALY [None]
  - CONDITION AGGRAVATED [None]
  - DEPRESSED LEVEL OF CONSCIOUSNESS [None]
  - DEPRESSION [None]
  - HYPERBILIRUBINAEMIA [None]
  - HYPERTENSION [None]
  - MULTI-ORGAN FAILURE [None]
  - NAUSEA [None]
  - PANCREATITIS [None]
  - PNEUMONIA [None]
  - RESPIRATORY FAILURE [None]
  - RHINITIS ALLERGIC [None]
  - SEPTIC SHOCK [None]
  - SPLENIC ABSCESS [None]
  - THERAPEUTIC AGENT TOXICITY [None]
  - UNEVALUABLE EVENT [None]
